FAERS Safety Report 10353877 (Version 2)
Quarter: 2014Q3

REPORT INFORMATION
  Report Type: Spontaneous
  Country: US (occurrence: US)
  Receive Date: 20140731
  Receipt Date: 20140911
  Transmission Date: 20150326
  Serious: Yes (Hospitalization, Other)
  Sender: FDA-Public Use
  Company Number: 2014SP004429

PATIENT
  Age: 58 Year
  Sex: Male

DRUGS (7)
  1. CEFPODOXIME [Suspect]
     Active Substance: CEFPODOXIME
     Indication: PRODUCT USED FOR UNKNOWN INDICATION
  2. BACLOFEN. [Suspect]
     Active Substance: BACLOFEN
     Indication: MUSCLE SPASTICITY
     Route: 037
     Dates: start: 20140618
  3. LEVOFLOXACIN [Suspect]
     Active Substance: LEVOFLOXACIN
     Indication: PRODUCT USED FOR UNKNOWN INDICATION
  4. BACLOFEN. [Suspect]
     Active Substance: BACLOFEN
     Indication: PRODUCT USED FOR UNKNOWN INDICATION
     Route: 048
  5. BACLOFEN. [Suspect]
     Active Substance: BACLOFEN
     Indication: PRODUCT USED FOR UNKNOWN INDICATION
     Route: 037
     Dates: end: 20140618
  6. COPAXONE [Suspect]
     Active Substance: GLATIRAMER ACETATE
     Indication: MULTIPLE SCLEROSIS
  7. DOXYCYCLINE. [Suspect]
     Active Substance: DOXYCYCLINE
     Indication: PRODUCT USED FOR UNKNOWN INDICATION

REACTIONS (23)
  - Escherichia test positive [Unknown]
  - Stenotrophomonas test positive [Unknown]
  - General physical health deterioration [Unknown]
  - Drug withdrawal syndrome [Unknown]
  - Muscle rigidity [Unknown]
  - Pain in extremity [Unknown]
  - Performance status decreased [Unknown]
  - Urinary tract infection [Unknown]
  - Insomnia [Unknown]
  - Multiple sclerosis [Unknown]
  - Dysstasia [Unknown]
  - Hypertension [Unknown]
  - Respiratory disorder [Unknown]
  - Bronchospasm [Unknown]
  - Pruritus [Unknown]
  - Therapeutic response increased [Unknown]
  - Muscle spasticity [Unknown]
  - Muscle spasms [Unknown]
  - No therapeutic response [Unknown]
  - Muscle atrophy [Unknown]
  - Quality of life decreased [Unknown]
  - Abnormal behaviour [Unknown]
  - Urine odour abnormal [Unknown]

NARRATIVE: CASE EVENT DATE: 201311
